FAERS Safety Report 6334916-6 (Version None)
Quarter: 2009Q3

REPORT INFORMATION
  Report Type: 
  Country: None (occurrence: None)
  Receive Date: 20090827
  Receipt Date: 20090820
  Transmission Date: 20100115
  Serious: Yes (Hospitalization, Other)
  Sender: FDA-Public Use
  Company Number: 2009SP013630

PATIENT
  Age: 57 Year
  Sex: Female
  Weight: 58.9676 kg

DRUGS (4)
  1. MIRALAX [Suspect]
     Indication: COLONOSCOPY
     Dosage: ONCE;PO
     Route: 048
     Dates: start: 20090428, end: 20090429
  2. MIRALAX [Suspect]
     Indication: OFF LABEL USE
     Dosage: ONCE;PO
     Route: 048
     Dates: start: 20090428, end: 20090429
  3. BISACODYL [Suspect]
     Indication: COLONOSCOPY
     Dates: start: 20090429
  4. LAXATIVE [Concomitant]

REACTIONS (6)
  - CHEST PAIN [None]
  - DEHYDRATION [None]
  - HYPONATRAEMIA [None]
  - MALAISE [None]
  - MEDICATION ERROR [None]
  - VOMITING [None]
